FAERS Safety Report 6933805-3 (Version None)
Quarter: 2010Q3

REPORT INFORMATION
  Report Type: 
  Country: None (occurrence: None)
  Receive Date: 20100820
  Receipt Date: 20100817
  Transmission Date: 20110219
  Serious: Yes (Life-Threatening, Hospitalization, Other)
  Sender: FDA-Public Use
  Company Number: CA-ROXANE LABORATORIES, INC.-2010-RO-01095RO

PATIENT
  Age: 75 Year
  Sex: Male

DRUGS (7)
  1. PREDNISONE [Suspect]
     Indication: POLYMYALGIA RHEUMATICA
     Dosage: 25 MG
     Route: 048
  2. PREDNISONE [Suspect]
     Dosage: 5 MG
     Route: 048
  3. PREDNISONE [Suspect]
     Dosage: 15 MG
     Route: 048
  4. ANTIMYCOBACTERIAL [Suspect]
     Indication: MYCOBACTERIUM TUBERCULOSIS COMPLEX TEST POSITIVE
  5. ISONIAZID [Suspect]
     Indication: MYCOBACTERIUM TUBERCULOSIS COMPLEX TEST POSITIVE
  6. RIFAMPIN [Suspect]
     Indication: MYCOBACTERIUM TUBERCULOSIS COMPLEX TEST POSITIVE
  7. ETHAMBUTOL HYDROCHLORIDE [Suspect]
     Indication: MYCOBACTERIUM TUBERCULOSIS COMPLEX TEST POSITIVE

REACTIONS (6)
  - ACID FAST BACILLI INFECTION [None]
  - AORTIC ANEURYSM RUPTURE [None]
  - DEEP VEIN THROMBOSIS [None]
  - MYCOBACTERIUM TUBERCULOSIS COMPLEX TEST POSITIVE [None]
  - MYCOTIC ANEURYSM [None]
  - VASCULAR PSEUDOANEURYSM [None]
